FAERS Safety Report 25287712 (Version 2)
Quarter: 2025Q2

REPORT INFORMATION
  Report Type: Spontaneous
  Country: TW (occurrence: TW)
  Receive Date: 20250509
  Receipt Date: 20250512
  Transmission Date: 20250716
  Serious: Yes (Life-Threatening, Hospitalization)
  Sender: PFIZER
  Company Number: TW-MLMSERVICE-20250430-PI493848-00140-1

PATIENT
  Age: 14 Year
  Sex: Female

DRUGS (8)
  1. CYTARABINE [Suspect]
     Active Substance: CYTARABINE
     Indication: Diffuse large B-cell lymphoma
     Dates: start: 20090618
  2. CYTARABINE [Suspect]
     Active Substance: CYTARABINE
     Route: 037
     Dates: start: 20090626
  3. ETOPOSIDE [Suspect]
     Active Substance: ETOPOSIDE
     Indication: Diffuse large B-cell lymphoma
     Dates: start: 20090618
  4. VINCRISTINE SULFATE [Suspect]
     Active Substance: VINCRISTINE SULFATE
     Indication: Diffuse large B-cell lymphoma
     Dates: start: 20090618
  5. METHOTREXATE SODIUM [Suspect]
     Active Substance: METHOTREXATE SODIUM
     Indication: Diffuse large B-cell lymphoma
     Route: 037
     Dates: start: 20090626
  6. CYCLOPHOSPHAMIDE [Suspect]
     Active Substance: CYCLOPHOSPHAMIDE
     Indication: Diffuse large B-cell lymphoma
     Dates: start: 20090618
  7. DEXAMETHASONE [Suspect]
     Active Substance: DEXAMETHASONE
     Indication: Diffuse large B-cell lymphoma
     Dates: start: 20090618
  8. HYDROCORTISONE [Concomitant]
     Active Substance: HYDROCORTISONE
     Indication: Diffuse large B-cell lymphoma
     Route: 037
     Dates: start: 20090626

REACTIONS (3)
  - Febrile neutropenia [Recovered/Resolved]
  - Hepatic enzyme increased [Recovered/Resolved]
  - Off label use [Unknown]

NARRATIVE: CASE EVENT DATE: 20090601
